FAERS Safety Report 12602909 (Version 1)
Quarter: 2016Q3

REPORT INFORMATION
  Report Type: Spontaneous
  Country: US (occurrence: US)
  Receive Date: 20160728
  Receipt Date: 20160728
  Transmission Date: 20161109
  Serious: No
  Sender: FDA-Public Use
  Company Number: PHEH2016US018764

PATIENT
  Age: 54 Year
  Sex: Female

DRUGS (1)
  1. PROMACTA [Suspect]
     Active Substance: ELTROMBOPAG OLAMINE
     Indication: THROMBOCYTOPENIA
     Dosage: 50 MG, QD
     Route: 048
     Dates: start: 20160523

REACTIONS (5)
  - Cough [Unknown]
  - Rash [Unknown]
  - Headache [Unknown]
  - Dyspnoea [Unknown]
  - Toothache [Unknown]

NARRATIVE: CASE EVENT DATE: 20160723
